FAERS Safety Report 8985695 (Version 2)
Quarter: 2013Q1

REPORT INFORMATION
  Report Type: Spontaneous
  Country: JP (occurrence: JP)
  Receive Date: 20121226
  Receipt Date: 20130109
  Transmission Date: 20140127
  Serious: Yes (Life-Threatening, Hospitalization)
  Sender: FDA-Public Use
  Company Number: JP-JNJFOC-20121209447

PATIENT
  Age: 39 Year
  Sex: Male
  Weight: 95 kg

DRUGS (27)
  1. DEXART [Concomitant]
     Indication: PREMEDICATION
     Route: 065
     Dates: start: 20120123, end: 20120123
  2. DEXART [Concomitant]
     Indication: PREMEDICATION
     Route: 065
     Dates: start: 20121112, end: 20121112
  3. DEXART [Concomitant]
     Indication: PREMEDICATION
     Route: 065
     Dates: start: 20120514, end: 20120514
  4. DEXART [Concomitant]
     Indication: PREMEDICATION
     Route: 065
     Dates: start: 20120319, end: 20120319
  5. DEXART [Concomitant]
     Indication: PREMEDICATION
     Route: 065
     Dates: start: 20121213, end: 20121213
  6. DEXART [Concomitant]
     Indication: PREMEDICATION
     Route: 065
     Dates: start: 20111128, end: 20111128
  7. DEXART [Concomitant]
     Indication: PREMEDICATION
     Route: 065
     Dates: start: 20111003, end: 20111003
  8. DEXART [Concomitant]
     Indication: PREMEDICATION
     Route: 065
     Dates: start: 20110905, end: 20110905
  9. DEXART [Concomitant]
     Indication: PREMEDICATION
     Route: 065
     Dates: start: 20110822, end: 20110822
  10. REMICADE [Suspect]
     Indication: PSORIASIS
     Route: 042
     Dates: start: 20120319
  11. REMICADE [Suspect]
     Indication: PSORIASIS
     Route: 042
     Dates: start: 20111003
  12. REMICADE [Suspect]
     Indication: PSORIASIS
     Route: 042
     Dates: start: 20111128
  13. REMICADE [Suspect]
     Indication: PSORIASIS
     Route: 042
     Dates: start: 20120123
  14. REMICADE [Suspect]
     Indication: PSORIASIS
     Route: 042
     Dates: start: 20110905
  15. REMICADE [Suspect]
     Indication: PSORIASIS
     Dosage: 1ST DOSE
     Route: 042
     Dates: start: 20110822
  16. REMICADE [Suspect]
     Indication: PSORIASIS
     Route: 042
     Dates: start: 20120514
  17. REMICADE [Suspect]
     Indication: PSORIASIS
     Route: 042
     Dates: start: 20121112
  18. REMICADE [Suspect]
     Indication: PSORIASIS
     Dosage: 9TH DOSE
     Route: 042
     Dates: start: 20121213
  19. POLARAMINE (DEXCHLORPHENIRAMINE MALEATE) [Concomitant]
     Indication: PREMEDICATION
     Route: 065
     Dates: start: 20111003, end: 20111003
  20. POLARAMINE (DEXCHLORPHENIRAMINE MALEATE) [Concomitant]
     Indication: PREMEDICATION
     Route: 065
     Dates: start: 20121112, end: 20121112
  21. POLARAMINE (DEXCHLORPHENIRAMINE MALEATE) [Concomitant]
     Indication: PREMEDICATION
     Route: 065
     Dates: start: 20120514, end: 20120514
  22. POLARAMINE (DEXCHLORPHENIRAMINE MALEATE) [Concomitant]
     Indication: PREMEDICATION
     Route: 065
     Dates: start: 20120319, end: 20120319
  23. POLARAMINE (DEXCHLORPHENIRAMINE MALEATE) [Concomitant]
     Indication: PREMEDICATION
     Route: 065
     Dates: start: 20120123, end: 20120123
  24. POLARAMINE (DEXCHLORPHENIRAMINE MALEATE) [Concomitant]
     Indication: PREMEDICATION
     Route: 065
     Dates: start: 20111128, end: 20111128
  25. POLARAMINE (DEXCHLORPHENIRAMINE MALEATE) [Concomitant]
     Indication: PREMEDICATION
     Route: 065
     Dates: start: 20110905, end: 20110905
  26. POLARAMINE (DEXCHLORPHENIRAMINE MALEATE) [Concomitant]
     Indication: PREMEDICATION
     Route: 065
     Dates: start: 20110822, end: 20110822
  27. POLARAMINE (DEXCHLORPHENIRAMINE MALEATE) [Concomitant]
     Indication: PREMEDICATION
     Route: 065
     Dates: start: 20121213, end: 20121213

REACTIONS (3)
  - Infusion related reaction [Recovered/Resolved]
  - Anaphylactic shock [Recovered/Resolved]
  - Therapeutic response decreased [Unknown]
